FAERS Safety Report 11037946 (Version 6)
Quarter: 2016Q3

REPORT INFORMATION
  Report Type: Spontaneous
  Country: US (occurrence: US)
  Receive Date: 20150416
  Receipt Date: 20160829
  Transmission Date: 20161109
  Serious: Yes (Other)
  Sender: FDA-Public Use
  Company Number: US-009507513-1504USA015076

PATIENT
  Sex: Male

DRUGS (2)
  1. PROPECIA [Suspect]
     Active Substance: FINASTERIDE
     Indication: ANDROGENETIC ALOPECIA
     Dosage: 1 MG, QD
     Route: 048
     Dates: start: 20050912
  2. FINASTERIDE. [Suspect]
     Active Substance: FINASTERIDE
     Indication: ANDROGENETIC ALOPECIA
     Dosage: 1 MG, QD
     Route: 048
     Dates: start: 2008, end: 2010

REACTIONS (39)
  - Semen volume decreased [Not Recovered/Not Resolved]
  - Vitiligo [Recovering/Resolving]
  - Endocrine disorder [Not Recovered/Not Resolved]
  - Hypoaesthesia [Not Recovered/Not Resolved]
  - Erectile dysfunction [Not Recovered/Not Resolved]
  - Gastrooesophageal reflux disease [Unknown]
  - Soft tissue injury [Not Recovered/Not Resolved]
  - Anxiety [Recovered/Resolved]
  - Seborrhoeic dermatitis [Unknown]
  - Vitamin D deficiency [Unknown]
  - Abscess [Unknown]
  - Fatigue [Unknown]
  - Malaise [Unknown]
  - Groin pain [Not Recovered/Not Resolved]
  - Testicular pain [Not Recovered/Not Resolved]
  - Depression [Recovered/Resolved]
  - Pain [Unknown]
  - Brain injury [Not Recovered/Not Resolved]
  - Injury [Unknown]
  - Breast enlargement [Not Recovered/Not Resolved]
  - Blood pressure increased [Unknown]
  - Hormone level abnormal [Not Recovered/Not Resolved]
  - Penile size reduced [Not Recovered/Not Resolved]
  - Ejaculation disorder [Not Recovered/Not Resolved]
  - Sexual dysfunction [Not Recovered/Not Resolved]
  - Loss of libido [Recovered/Resolved]
  - Abdominal discomfort [Unknown]
  - Sinusitis [Unknown]
  - Osteoarthritis [Unknown]
  - Marital problem [Unknown]
  - Erectile dysfunction [Not Recovered/Not Resolved]
  - Libido decreased [Recovered/Resolved]
  - Sexual dysfunction [Not Recovered/Not Resolved]
  - Anaemia [Unknown]
  - Testicular disorder [Not Recovered/Not Resolved]
  - Painful ejaculation [Not Recovered/Not Resolved]
  - Testicular failure [Not Recovered/Not Resolved]
  - Disturbance in attention [Not Recovered/Not Resolved]
  - Arthralgia [Not Recovered/Not Resolved]

NARRATIVE: CASE EVENT DATE: 2006
